FAERS Safety Report 11120790 (Version 1)
Quarter: 2015Q2

REPORT INFORMATION
  Report Type: Spontaneous
  Country: US (occurrence: US)
  Receive Date: 20150519
  Receipt Date: 20150519
  Transmission Date: 20150821
  Serious: No
  Sender: FDA-Public Use
  Company Number: US-BAYER-2015-231587

PATIENT
  Sex: Female

DRUGS (2)
  1. MAGNEVIST [Suspect]
     Active Substance: GADOPENTETATE DIMEGLUMINE
     Indication: HEADACHE
  2. MAGNEVIST [Suspect]
     Active Substance: GADOPENTETATE DIMEGLUMINE
     Indication: SCAN BRAIN
     Dosage: 15 ML, ONCE
     Dates: start: 20150507, end: 20150507

REACTIONS (1)
  - Urticaria [None]

NARRATIVE: CASE EVENT DATE: 20150507
